FAERS Safety Report 20234380 (Version 1)
Quarter: 2021Q4

REPORT INFORMATION
  Report Type: Spontaneous
  Country: US (occurrence: US)
  Receive Date: 20211227
  Receipt Date: 20211227
  Transmission Date: 20220303
  Serious: No
  Sender: FDA-Public Use
  Company Number: US-FOUNDATIONCONSUMERHC-2021-US-023188

PATIENT
  Age: 40 Year
  Sex: Female
  Weight: 49.9 kg

DRUGS (4)
  1. PLAN B ONE-STEP [Suspect]
     Active Substance: LEVONORGESTREL
     Indication: Post coital contraception
     Dosage: 1.5 MG
     Route: 048
     Dates: start: 20211021, end: 20211021
  2. LOSARTAN [Concomitant]
     Active Substance: LOSARTAN
  3. HYDROCHLOROTHIAZIDE [Concomitant]
     Active Substance: HYDROCHLOROTHIAZIDE
  4. VITAMINS [Concomitant]
     Active Substance: VITAMINS

REACTIONS (4)
  - Nausea [Recovered/Resolved]
  - Dysmenorrhoea [Recovered/Resolved]
  - Dyspnoea [Recovered/Resolved]
  - Nervousness [Not Recovered/Not Resolved]

NARRATIVE: CASE EVENT DATE: 20211021
